FAERS Safety Report 12645263 (Version 2)
Quarter: 2016Q3

REPORT INFORMATION
  Report Type: Spontaneous
  Country: RO (occurrence: DE)
  Receive Date: 20160811
  Receipt Date: 20160822
  Transmission Date: 20161109
  Serious: Yes (Other)
  Sender: FDA-Public Use
  Company Number: RO-SYMPLMED PHARMACEUTICALS-2016SYMPLMED000292

PATIENT

DRUGS (2)
  1. PRESTARIUM [Suspect]
     Active Substance: PERINDOPRIL
     Indication: HYPERTENSION
     Dosage: 5 MG, QD
     Route: 048
     Dates: start: 2011
  2. ASPIRIN                            /00002701/ [Concomitant]
     Active Substance: ASPIRIN
     Indication: PRODUCT USED FOR UNKNOWN INDICATION
     Dosage: 75 MG, QD
     Route: 048
     Dates: start: 2011, end: 2016

REACTIONS (12)
  - Blood triglycerides increased [Unknown]
  - Blood cholesterol increased [Unknown]
  - Transaminases increased [Unknown]
  - Fatigue [Unknown]
  - Anaemia [Unknown]
  - Large intestine polyp [Unknown]
  - Haematochezia [Not Recovered/Not Resolved]
  - Periodontitis [Unknown]
  - Epistaxis [Unknown]
  - Weight increased [Unknown]
  - Headache [Unknown]
  - Dizziness [Unknown]

NARRATIVE: CASE EVENT DATE: 2015
